FAERS Safety Report 5506031-2 (Version None)
Quarter: 2007Q4

REPORT INFORMATION
  Report Type: 
  Country: None (occurrence: None)
  Receive Date: 20071102
  Receipt Date: 20071102
  Transmission Date: 20080405
  Serious: Yes (Life-Threatening)
  Sender: FDA-Public Use
  Company Number: None

PATIENT
  Age: 53 Year
  Sex: Male
  Weight: 80.6 kg

DRUGS (2)
  1. LABETALOL HCL [Suspect]
     Indication: CHEST PAIN
     Dosage: 15 MG. ONCE IV
     Route: 042
     Dates: start: 20071023, end: 20071023
  2. LABETALOL HCL [Suspect]
     Indication: HYPERTENSION

REACTIONS (6)
  - CARDIO-RESPIRATORY ARREST [None]
  - DYSPNOEA [None]
  - NAUSEA [None]
  - PHARYNGEAL OEDEMA [None]
  - THROAT TIGHTNESS [None]
  - VISION BLURRED [None]
